FAERS Safety Report 7749923-6 (Version None)
Quarter: 2011Q3

REPORT INFORMATION
  Report Type: 
  Country: None (occurrence: None)
  Receive Date: 20110914
  Receipt Date: 20110902
  Transmission Date: 20111222
  Serious: Yes (Other)
  Sender: FDA-Public Use
  Company Number: US-US-EMD SERONO, INC.-7081664

PATIENT
  Sex: Male
  Weight: 93 kg

DRUGS (8)
  1. VITAMIN TAB [Concomitant]
  2. ABILIFY [Concomitant]
     Indication: BIPOLAR DISORDER
  3. PRISTIQ [Suspect]
     Indication: BIPOLAR DISORDER
     Route: 048
     Dates: start: 20100101
  4. LOPID [Concomitant]
  5. REBIF [Suspect]
     Indication: MULTIPLE SCLEROSIS
  6. PRISTIQ [Suspect]
     Indication: DEPRESSION
     Route: 048
  7. FISH OIL [Concomitant]
  8. NIASPAN [Concomitant]
     Indication: BLOOD TRIGLYCERIDES INCREASED

REACTIONS (4)
  - BLOOD TRIGLYCERIDES INCREASED [None]
  - ANXIETY [None]
  - BLOOD GLUCOSE ABNORMAL [None]
  - ABDOMINAL DISCOMFORT [None]
